FAERS Safety Report 25957371 (Version 1)
Quarter: 2025Q4

REPORT INFORMATION
  Report Type: Spontaneous
  Country: US (occurrence: US)
  Receive Date: 20251024
  Receipt Date: 20251024
  Transmission Date: 20260117
  Serious: No
  Sender: SEPTODONT
  Company Number: US-SEPTODONT-2025019488

PATIENT
  Age: 27 Year
  Sex: Male
  Weight: 141 kg

DRUGS (6)
  1. SEPTOCAINE [Suspect]
     Active Substance: ARTICAINE HYDROCHLORIDE\EPINEPHRINE BITARTRATE
     Indication: Dental local anaesthesia
     Dosage: 1 CARP.
     Route: 004
     Dates: start: 20250305, end: 20250305
  2. 30Ga Short Needle [Concomitant]
     Dates: start: 20250305
  3. 27Ga Long Needle [Concomitant]
     Dates: start: 20250305
  4. Benzocaine 20% [Concomitant]
     Route: 061
  5. GUANFACINE [Concomitant]
     Active Substance: GUANFACINE
     Indication: Hypertension
  6. ESCITALOPRAM [Concomitant]
     Active Substance: ESCITALOPRAM OXALATE
     Indication: Depression
     Dosage: 2 CARPS.

REACTIONS (1)
  - Drug ineffective [Unknown]

NARRATIVE: CASE EVENT DATE: 20250305
